FAERS Safety Report 23545395 (Version 2)
Quarter: 2024Q1

REPORT INFORMATION
  Report Type: Spontaneous
  Country: IT (occurrence: None)
  Receive Date: 20240220
  Receipt Date: 20240227
  Transmission Date: 20240409
  Serious: No
  Sender: FDA-Public Use
  Company Number: 2024A040352

PATIENT
  Age: 59 Year
  Sex: Female

DRUGS (4)
  1. FULVESTRANT [Suspect]
     Active Substance: FULVESTRANT
     Indication: Breast cancer metastatic
     Route: 030
  2. FULVESTRANT [Suspect]
     Active Substance: FULVESTRANT
     Indication: Breast cancer metastatic
     Route: 030
  3. PALBOCICLIB [Suspect]
     Active Substance: PALBOCICLIB
     Indication: Breast cancer metastatic
     Route: 048
  4. PALBOCICLIB [Suspect]
     Active Substance: PALBOCICLIB
     Indication: Breast cancer metastatic
     Route: 048

REACTIONS (1)
  - Drug ineffective [Unknown]
